FAERS Safety Report 17481687 (Version 2)
Quarter: 2020Q4

REPORT INFORMATION
  Report Type: Report from Study
  Country: US (occurrence: US)
  Receive Date: 20200302
  Receipt Date: 20201230
  Transmission Date: 20210113
  Serious: Yes (Hospitalization, Other)
  Sender: FDA-Public Use
  Company Number: NVSC2020US058570

PATIENT
  Age: 30 Year
  Sex: Female
  Weight: 59.4 kg

DRUGS (39)
  1. TOBRAMYCIN. [Suspect]
     Active Substance: TOBRAMYCIN
     Indication: INFECTIVE PULMONARY EXACERBATION OF CYSTIC FIBROSIS
     Dosage: 300 MG, BID
     Route: 065
     Dates: start: 20130122
  2. ZOLPIDEM [Concomitant]
     Active Substance: ZOLPIDEM TARTRATE
     Indication: SLEEP DISORDER
     Dosage: 5 MG
     Route: 065
     Dates: start: 20130527
  3. PROAIR HFA [Concomitant]
     Active Substance: ALBUTEROL SULFATE
     Dosage: UNK
     Route: 065
     Dates: start: 20170518
  4. PULMOZYME [Concomitant]
     Active Substance: DORNASE ALFA
     Dosage: UNK
     Route: 065
     Dates: start: 20170518
  5. SYMBICORT [Concomitant]
     Active Substance: BUDESONIDE\FORMOTEROL FUMARATE DIHYDRATE
     Indication: CYSTIC FIBROSIS LUNG
     Dosage: 2 DF, BID
     Route: 065
  6. CAYSTON [Concomitant]
     Active Substance: AZTREONAM
     Indication: CYSTIC FIBROSIS LUNG
     Dosage: 75 MG, TID
     Route: 065
     Dates: start: 20140923
  7. FLUTICASONE. [Concomitant]
     Active Substance: FLUTICASONE
     Indication: SINUS DISORDER
  8. MAGNESIUM OXIDE. [Concomitant]
     Active Substance: MAGNESIUM OXIDE
     Indication: CYSTIC FIBROSIS
     Dosage: 400 MG, BID
     Route: 048
     Dates: start: 20140923
  9. PULMOSAL [Concomitant]
     Active Substance: SODIUM CHLORIDE
     Dosage: UNK
     Route: 065
     Dates: start: 20170518
  10. DEKA [Concomitant]
     Indication: CYSTIC FIBROSIS
     Dosage: 1 DF, BID
     Route: 048
     Dates: start: 20110901
  11. OYSTERCAL [Concomitant]
     Indication: CYSTIC FIBROSIS
     Dosage: 1250 MG, BID
     Route: 065
     Dates: start: 20131217
  12. VITAMIN B1 [Concomitant]
     Active Substance: THIAMINE HYDROCHLORIDE
     Indication: PANCREATIC FAILURE
     Dosage: 100 MG
     Route: 065
     Dates: start: 20170518
  13. ALBUTEROL. [Concomitant]
     Active Substance: ALBUTEROL
     Indication: CYSTIC FIBROSIS LUNG
     Dosage: 1 DF, BID
     Route: 065
     Dates: start: 20160301
  14. COLACE [Concomitant]
     Active Substance: DOCUSATE SODIUM
     Indication: PANCREATIC FAILURE
  15. PULMOZYME [Concomitant]
     Active Substance: DORNASE ALFA
     Indication: CYSTIC FIBROSIS LUNG
     Dosage: 2.5 MG, BID
     Route: 065
     Dates: start: 20110823
  16. OCEAN SALINE NASAL SPRAY [Concomitant]
     Active Substance: SODIUM CHLORIDE
     Indication: CYSTIC FIBROSIS
     Dosage: 2 DF, QHS,  Q2H
     Route: 045
     Dates: start: 20150218
  17. AZITHROMYCIN ANHYDROUS. [Concomitant]
     Active Substance: AZITHROMYCIN ANHYDROUS
     Indication: CYSTIC FIBROSIS LUNG
     Dosage: 1 DF, QD
     Route: 048
     Dates: start: 20131217
  18. OCEAN SALINE NASAL SPRAY [Concomitant]
     Active Substance: SODIUM CHLORIDE
     Indication: SINUS DISORDER
     Dosage: UNK
     Route: 065
     Dates: start: 20170518
  19. TOBRAMYCIN. [Suspect]
     Active Substance: TOBRAMYCIN
     Indication: CYSTIC FIBROSIS LUNG
     Dosage: 300 MG, BID
     Route: 065
  20. VITAMIN A [Concomitant]
     Active Substance: VITAMIN A
     Indication: CYSTIC FIBROSIS
     Dosage: 1 DF, TID
     Route: 048
     Dates: start: 20130122
  21. ZOLPIDEM [Concomitant]
     Active Substance: ZOLPIDEM TARTRATE
     Dosage: UNK
     Route: 065
     Dates: start: 20170518
  22. CREON [Concomitant]
     Active Substance: PANCRELIPASE AMYLASE\PANCRELIPASE LIPASE\PANCRELIPASE PROTEASE
     Indication: CYSTIC FIBROSIS
     Dosage: 2 DF, BID
     Route: 048
     Dates: start: 20110901
  23. CREON [Concomitant]
     Active Substance: PANCRELIPASE AMYLASE\PANCRELIPASE LIPASE\PANCRELIPASE PROTEASE
     Indication: PANCREATIC FAILURE
  24. PROAIR HFA [Concomitant]
     Active Substance: ALBUTEROL SULFATE
     Indication: CYSTIC FIBROSIS LUNG
     Dosage: 2 DF, TID
     Route: 065
     Dates: start: 20140513
  25. PULMOSAL [Concomitant]
     Active Substance: SODIUM CHLORIDE
     Indication: CYSTIC FIBROSIS LUNG
     Dosage: 4 ML, TID
     Route: 065
     Dates: start: 20110901
  26. MAGNESIUM OXIDE. [Concomitant]
     Active Substance: MAGNESIUM OXIDE
     Indication: PANCREATIC FAILURE
  27. DEKA [Concomitant]
     Indication: PANCREATIC FAILURE
     Dosage: UNK
     Route: 065
     Dates: start: 20170518
  28. PANTOPRAZOLE [Concomitant]
     Active Substance: PANTOPRAZOLE
     Indication: CYSTIC FIBROSIS LUNG
     Dosage: 40 MG, BID
     Route: 048
     Dates: start: 20120515
  29. VITAMIN A [Concomitant]
     Active Substance: VITAMIN A
     Indication: PANCREATIC FAILURE
  30. POLYETHYLENE GLYCOL [Concomitant]
     Active Substance: POLYETHYLENE GLYCOLS
     Indication: PANCREATIC FAILURE
  31. FLUTICASONE. [Concomitant]
     Active Substance: FLUTICASONE
     Indication: CYSTIC FIBROSIS
     Dosage: 50 UG, QD 2 SPRAYS
     Route: 045
     Dates: start: 20151027
  32. VITAMIN B1 [Concomitant]
     Active Substance: THIAMINE HYDROCHLORIDE
     Indication: CYSTIC FIBROSIS
     Dosage: 100 MG
     Route: 048
     Dates: start: 20140923
  33. ADVAIR HFA [Concomitant]
     Active Substance: FLUTICASONE PROPIONATE\SALMETEROL XINAFOATE
     Indication: CYSTIC FIBROSIS LUNG
     Dosage: 1 PUFF, BID
     Route: 065
     Dates: start: 20170118, end: 20170418
  34. COLACE [Concomitant]
     Active Substance: DOCUSATE SODIUM
     Indication: CYSTIC FIBROSIS
     Dosage: 1 DF, BID
     Route: 048
     Dates: start: 20170118
  35. POLYETHYLENE GLYCOL [Concomitant]
     Active Substance: POLYETHYLENE GLYCOLS
     Indication: CYSTIC FIBROSIS
     Dosage: 17 G, QD
     Route: 048
     Dates: start: 20120208, end: 20170518
  36. OMEPRAZOLE. [Concomitant]
     Active Substance: OMEPRAZOLE
     Indication: CYSTIC FIBROSIS LUNG
     Dosage: 40 MG, BID
     Route: 048
     Dates: start: 20120515
  37. SYMBICORT [Concomitant]
     Active Substance: BUDESONIDE\FORMOTEROL FUMARATE DIHYDRATE
     Dosage: UNK
     Route: 065
     Dates: start: 20170518
  38. MUPIROCIN. [Concomitant]
     Active Substance: MUPIROCIN
     Indication: PRODUCT USED FOR UNKNOWN INDICATION
     Dosage: UNK
     Route: 061
  39. OYSTERCAL [Concomitant]
     Indication: PANCREATIC FAILURE
     Dosage: UNK
     Route: 065
     Dates: start: 20170518

REACTIONS (1)
  - Infective pulmonary exacerbation of cystic fibrosis [Recovered/Resolved]

NARRATIVE: CASE EVENT DATE: 20170519
